FAERS Safety Report 8729600 (Version 3)
Quarter: 2012Q4

REPORT INFORMATION
  Report Type: Report from Study
  Country: CA (occurrence: CA)
  Receive Date: 20120817
  Receipt Date: 20121004
  Transmission Date: 20130627
  Serious: Yes (Death, Other)
  Sender: FDA-Public Use
  Company Number: CA-ROCHE-1090525

PATIENT
  Age: 64 None
  Sex: Female

DRUGS (11)
  1. ZELBORAF [Suspect]
     Indication: METASTATIC MALIGNANT MELANOMA
     Route: 048
     Dates: start: 20120629, end: 201209
  2. PANTOLOC [Concomitant]
  3. ATIVAN [Concomitant]
  4. CRESTOR [Concomitant]
  5. DOCUSATE SODIUM [Concomitant]
  6. CLOZAPINE [Concomitant]
  7. OLANZAPINE [Concomitant]
  8. OXYBUTYNIN [Concomitant]
  9. DEXAMETHASONE [Concomitant]
  10. SERTRALINE [Concomitant]
  11. SYNTHROID [Concomitant]

REACTIONS (5)
  - Disease progression [Fatal]
  - Increased appetite [Not Recovered/Not Resolved]
  - Swelling [Not Recovered/Not Resolved]
  - Weight increased [Not Recovered/Not Resolved]
  - Oral disorder [Not Recovered/Not Resolved]
